FAERS Safety Report 5858801-9 (Version None)
Quarter: 2008Q3

REPORT INFORMATION
  Report Type: 
  Country: None (occurrence: None)
  Receive Date: 20080825
  Receipt Date: 20080812
  Transmission Date: 20090109
  Serious: No
  Sender: FDA-Public Use
  Company Number: GXBR2008US01503

PATIENT
  Age: 77 Year
  Sex: Female
  Weight: 79.4 kg

DRUGS (7)
  1. ALPRAZOLAM [Suspect]
     Indication: ANXIETY
     Dosage: 1MG ONE TO FOUR TIMES DAILY, ORAL, 2 MG, QID, ORAL
     Route: 048
     Dates: end: 20080716
  2. ALPRAZOLAM [Suspect]
     Indication: ANXIETY
     Dosage: 1MG ONE TO FOUR TIMES DAILY, ORAL, 2 MG, QID, ORAL
     Route: 048
     Dates: start: 20080718
  3. TRANXENE [Suspect]
     Indication: ANXIETY
     Dosage: 1/2 OF 3.75MG, TAB., ORAL
     Route: 048
     Dates: start: 20080718, end: 20080718
  4. NORVASC [Concomitant]
  5. ASPIRIN [Concomitant]
  6. VITAMINS (NO INGREDIENTS/SUBSTANCES) [Concomitant]
  7. ENALAPRIL MALEATE [Concomitant]

REACTIONS (8)
  - ANXIETY [None]
  - BLOOD PRESSURE INCREASED [None]
  - CONDITION AGGRAVATED [None]
  - DYSGEUSIA [None]
  - HEART RATE INCREASED [None]
  - INSOMNIA [None]
  - MALAISE [None]
  - PHARMACEUTICAL PRODUCT COMPLAINT [None]
